FAERS Safety Report 10109621 (Version 1)
Quarter: 2014Q2

REPORT INFORMATION
  Report Type: Spontaneous
  Country: FR (occurrence: None)
  Receive Date: 20140423
  Receipt Date: 20140423
  Transmission Date: 20141212
  Serious: Yes (Life-Threatening)
  Sender: FDA-Public Use
  Company Number: FK201401379

PATIENT
  Age: 47 Year
  Sex: Female

DRUGS (5)
  1. PROPOFOL FRESENIUS [Suspect]
     Indication: INDUCTION OF ANAESTHESIA
  2. SUFENTANIL [Suspect]
     Indication: INDUCTION OF ANAESTHESIA
     Route: 042
     Dates: start: 20140224, end: 20140224
  3. ESMERON [Suspect]
     Indication: INDUCTION OF ANAESTHESIA
     Route: 042
     Dates: start: 20140224, end: 20140224
  4. CYMBALTA [Concomitant]
  5. SEVIKAR (AZOR) [Concomitant]

REACTIONS (7)
  - Anaphylactic shock [None]
  - Rash [None]
  - Renal failure acute [None]
  - Acidosis [None]
  - Lung disorder [None]
  - Hyperglycaemia [None]
  - Renal tubular necrosis [None]
